FAERS Safety Report 5343454-9 (Version None)
Quarter: 2007Q2

REPORT INFORMATION
  Report Type: 
  Country: None (occurrence: None)
  Receive Date: 20070531
  Receipt Date: 20070115
  Transmission Date: 20071010
  Serious: Yes (Hospitalization)
  Sender: FDA-Public Use
  Company Number: 2007VX000109

PATIENT
  Sex: Female

DRUGS (4)
  1. FLURAZEPAM HCL [Suspect]
  2. OPIPRAMOL (OPIPRAMOL) [Suspect]
     Dosage: 550 MG; ; PO
     Route: 048
  3. MONTELUKAST SODIUM [Suspect]
     Dosage: 100 MG; ;PO
     Route: 048
  4. LORAZEPAM [Suspect]
     Dosage: 2 MG; ;PO
     Route: 048

REACTIONS (3)
  - AGITATION [None]
  - MULTIPLE DRUG OVERDOSE [None]
  - SUICIDE ATTEMPT [None]
